FAERS Safety Report 12968297 (Version 1)
Quarter: 2016Q4

REPORT INFORMATION
  Report Type: Not Available
  Country: US (occurrence: US)
  Receive Date: 20161123
  Receipt Date: 20161123
  Transmission Date: 20170207
  Serious: Yes (Other)
  Sender: FDA-Public Use
  Company Number: US-ANIPHARMA-2016-US-009396

PATIENT
  Age: 58 Year
  Sex: Female

DRUGS (1)
  1. LITHIUM CARBONATE (NON-SPECIFIC) [Suspect]
     Active Substance: LITHIUM
     Dosage: 450 MG PER DAY
     Route: 048

REACTIONS (1)
  - Carcinoembryonic antigen increased [Unknown]
